FAERS Safety Report 6421466-1 (Version None)
Quarter: 2009Q4

REPORT INFORMATION
  Report Type: 
  Country: None (occurrence: None)
  Receive Date: 20091030
  Receipt Date: 20091020
  Transmission Date: 20100525
  Serious: Yes (Hospitalization, Other)
  Sender: FDA-Public Use
  Company Number: US-PFIZER INC-2009283765

PATIENT
  Sex: Female

DRUGS (4)
  1. XALATAN [Suspect]
  2. LIPITOR [Suspect]
  3. PLAVIX [Suspect]
  4. BETIMOL [Suspect]

REACTIONS (14)
  - ABASIA [None]
  - BLINDNESS [None]
  - BLINDNESS UNILATERAL [None]
  - BLOOD PRESSURE INCREASED [None]
  - FALL [None]
  - HEAT STROKE [None]
  - HYPERHIDROSIS [None]
  - LOSS OF CONSCIOUSNESS [None]
  - MEMORY IMPAIRMENT [None]
  - MUSCULAR WEAKNESS [None]
  - MUSCULOSKELETAL STIFFNESS [None]
  - OCULAR VASCULAR DISORDER [None]
  - OPTIC ISCHAEMIC NEUROPATHY [None]
  - VISUAL IMPAIRMENT [None]
